FAERS Safety Report 9235569 (Version 1)
Quarter: 2013Q2

REPORT INFORMATION
  Report Type: Spontaneous
  Country: GB (occurrence: GB)
  Receive Date: 20130417
  Receipt Date: 20130417
  Transmission Date: 20140414
  Serious: Yes (Hospitalization)
  Sender: FDA-Public Use
  Company Number: GB-JNJFOC-20130405166

PATIENT
  Age: 66 Year
  Sex: Female

DRUGS (5)
  1. XARELTO [Suspect]
     Indication: PRODUCT USED FOR UNKNOWN INDICATION
     Route: 048
  2. PARACETAMOL [Concomitant]
     Route: 065
  3. CODEINE [Concomitant]
     Route: 065
  4. SENNOSIDES A AND B [Concomitant]
     Route: 065
  5. DOCUSATE [Concomitant]
     Route: 065

REACTIONS (1)
  - Headache [Not Recovered/Not Resolved]
